FAERS Safety Report 25273303 (Version 1)
Quarter: 2025Q2

REPORT INFORMATION
  Report Type: Spontaneous
  Country: US (occurrence: US)
  Receive Date: 20250506
  Receipt Date: 20250506
  Transmission Date: 20250717
  Serious: No
  Sender: AMNEAL
  Company Number: US-AMNEAL PHARMACEUTICALS-2024-AMRX-03991

PATIENT
  Sex: Female
  Weight: 5.442 kg

DRUGS (3)
  1. VIGABATRIN [Suspect]
     Active Substance: VIGABATRIN
     Indication: Infantile spasms
     Dosage: 370 MILLIGRAM, 2X/DAY (MIX 1 PACKET IN 10 ML OF WATER AND GIVE/TAKE 7.4 ML (370 MG) TWICE A DAY. DIS
     Route: 065
  2. KEPPRA [Concomitant]
     Active Substance: LEVETIRACETAM
     Indication: Product used for unknown indication
     Route: 065
  3. PHENOBARBITAL [Concomitant]
     Active Substance: PHENOBARBITAL
     Indication: Product used for unknown indication
     Route: 065

REACTIONS (3)
  - Depressed level of consciousness [Unknown]
  - Restlessness [Unknown]
  - Somnolence [Unknown]
